FAERS Safety Report 15886843 (Version 1)
Quarter: 2019Q1

REPORT INFORMATION
  Report Type: Spontaneous
  Country: FR (occurrence: FR)
  Receive Date: 20190129
  Receipt Date: 20190129
  Transmission Date: 20190417
  Serious: Yes (Other)
  Sender: FDA-Public Use
  Company Number: FR-PROVELL PHARMACEUTICALS-2061904

PATIENT
  Age: 50 Year
  Sex: Female

DRUGS (1)
  1. EUTHYROX [Suspect]
     Active Substance: LEVOTHYROXINE SODIUM
     Indication: HYPOTHYROIDISM
     Route: 048
     Dates: start: 201706, end: 201709

REACTIONS (12)
  - Weight loss poor [Recovering/Resolving]
  - Hypothermia [Recovered/Resolved]
  - Pruritus [Recovered/Resolved]
  - Myalgia [Not Recovered/Not Resolved]
  - Memory impairment [Not Recovered/Not Resolved]
  - Hyperthermia [Recovered/Resolved]
  - Alopecia [Not Recovered/Not Resolved]
  - Urine abnormality [Recovered/Resolved]
  - Arthralgia [Not Recovered/Not Resolved]
  - Tachycardia [Recovered/Resolved]
  - Nausea [Recovered/Resolved]
  - Claudication of jaw muscles [Not Recovered/Not Resolved]

NARRATIVE: CASE EVENT DATE: 201707
